FAERS Safety Report 20664982 (Version 11)
Quarter: 2025Q1

REPORT INFORMATION
  Report Type: Spontaneous
  Country: US (occurrence: US)
  Receive Date: 20220401
  Receipt Date: 20250109
  Transmission Date: 20250409
  Serious: No
  Sender: PFIZER
  Company Number: US-PFIZER INC-2021848467

PATIENT
  Age: 68 Year
  Sex: Female
  Weight: 126.1 kg

DRUGS (2)
  1. IBRANCE [Suspect]
     Active Substance: PALBOCICLIB
     Indication: Breast mass
     Route: 048
  2. IBRANCE [Suspect]
     Active Substance: PALBOCICLIB
     Indication: Breast cancer female

REACTIONS (4)
  - Body height decreased [Unknown]
  - Vision blurred [Unknown]
  - Asthenia [Unknown]
  - Fatigue [Unknown]
